FAERS Safety Report 12692797 (Version 1)
Quarter: 2016Q3

REPORT INFORMATION
  Report Type: Report from Study
  Country: JP (occurrence: JP)
  Receive Date: 20160829
  Receipt Date: 20160829
  Transmission Date: 20161109
  Serious: Yes (Other)
  Sender: FDA-Public Use
  Company Number: JP-CIPLA LTD.-2016JP17179

PATIENT

DRUGS (4)
  1. IRINOTECAN [Suspect]
     Active Substance: IRINOTECAN
     Indication: COLORECTAL CANCER RECURRENT
     Dosage: 150 MG/M2, OVER AT LEAST 90 MIN ON DAYS 1 AND 15 IN A 28-DAY CYCLE
     Route: 042
  2. IRINOTECAN [Suspect]
     Active Substance: IRINOTECAN
     Dosage: UNK, CYCLE 2
     Route: 042
  3. OXALIPLATIN. [Suspect]
     Active Substance: OXALIPLATIN
     Indication: COLORECTAL CANCER RECURRENT
     Dosage: UNK
     Route: 065
  4. TAS-102 [Suspect]
     Active Substance: TIPIRACIL HYDROCHLORIDE\TRIFLURIDINE
     Indication: COLORECTAL CANCER RECURRENT
     Dosage: 60 MG/M2/DAY, BID
     Route: 065

REACTIONS (3)
  - Neutropenia [Recovered/Resolved]
  - Febrile neutropenia [Unknown]
  - Disease progression [Unknown]
